FAERS Safety Report 22004390 (Version 1)
Quarter: 2023Q1

REPORT INFORMATION
  Report Type: Spontaneous
  Country: US (occurrence: US)
  Receive Date: 20230217
  Receipt Date: 20230217
  Transmission Date: 20230418
  Serious: Yes (Hospitalization)
  Sender: FDA-Public Use
  Company Number: US-BAYER-2023A016285

PATIENT
  Age: 31 Year
  Sex: Female

DRUGS (4)
  1. ASPIRIN [Suspect]
     Active Substance: ASPIRIN
     Indication: Gynaecological disorder prophylaxis
  2. ENOXAPARIN [Suspect]
     Active Substance: ENOXAPARIN
  3. FONDAPARINUX [Suspect]
     Active Substance: FONDAPARINUX
  4. HEPARIN [Suspect]
     Active Substance: HEPARIN SODIUM

REACTIONS (6)
  - Sickle cell anaemia with crisis [None]
  - Caesarean section [None]
  - Procedural haemorrhage [None]
  - Labelled drug-drug interaction medication error [None]
  - Off label use [None]
  - Contraindicated product administered [None]
